FAERS Safety Report 19111297 (Version 1)
Quarter: 2021Q2

REPORT INFORMATION
  Report Type: Spontaneous
  Country: US (occurrence: US)
  Receive Date: 20210408
  Receipt Date: 20210408
  Transmission Date: 20210717
  Serious: Yes (Disabling)
  Sender: FDA-Public Use
  Company Number: None

PATIENT
  Age: 78 Year
  Sex: Male
  Weight: 96.75 kg

DRUGS (15)
  1. LACTASE ENZYME [Concomitant]
     Active Substance: LACTASE
  2. ATENOLOL. [Concomitant]
     Active Substance: ATENOLOL
  3. ASPIRIN. [Concomitant]
     Active Substance: ASPIRIN
  4. CHONDROITIN [Concomitant]
     Active Substance: CHONDROITIN
  5. VITAMIN D3 [Concomitant]
     Active Substance: CHOLECALCIFEROL
  6. SULINDAC. [Concomitant]
     Active Substance: SULINDAC
  7. FISH OIL [Concomitant]
     Active Substance: FISH OIL
  8. CALCIUM [Concomitant]
     Active Substance: CALCIUM
  9. MATURE MULTIVITAMINS [Concomitant]
  10. VITAMIN C [Concomitant]
     Active Substance: ASCORBIC ACID
  11. GLUCOSAMINE CHONDROITIN [Concomitant]
     Active Substance: CHONDROITIN SULFATE (BOVINE)\GLUCOSAMINE HYDROCHLORIDE
  12. PSYLLIUM HUSK POWDER [Concomitant]
  13. LEVOTHYROXINE. [Concomitant]
     Active Substance: LEVOTHYROXINE
  14. LOVASTATIN. [Concomitant]
     Active Substance: LOVASTATIN
  15. ALENDRONATE 70 MG GENERIC FOR FOSAMAX [Suspect]
     Active Substance: ALENDRONATE SODIUM
     Indication: OSTEOPOROSIS
     Route: 048
     Dates: start: 20200501, end: 20210401

REACTIONS (4)
  - Mastication disorder [None]
  - Ligament sprain [None]
  - Jaw disorder [None]
  - Muscular weakness [None]

NARRATIVE: CASE EVENT DATE: 20200801
